FAERS Safety Report 8883682 (Version 4)
Quarter: 2014Q1

REPORT INFORMATION
  Report Type: Spontaneous
  Country: US (occurrence: US)
  Receive Date: 20121102
  Receipt Date: 20140227
  Transmission Date: 20141002
  Serious: Yes (Hospitalization, Other)
  Sender: FDA-Public Use
  Company Number: US-009507513-1210USA012397

PATIENT
  Sex: Female
  Weight: 68.48 kg

DRUGS (6)
  1. FOSAMAX [Suspect]
     Indication: OSTEOPOROSIS
     Dosage: 10 MG, QD
     Route: 048
     Dates: start: 19960131, end: 20010212
  2. FOSAMAX [Suspect]
     Indication: OSTEOPENIA
     Dosage: 70 MG, QW
     Route: 048
     Dates: start: 20010716, end: 20040702
  3. ALENDRONATE SODIUM [Suspect]
     Indication: OSTEOPOROSIS
     Dosage: 70 MG, UNK
     Dates: start: 20100114, end: 20100826
  4. ALENDRONATE SODIUM [Suspect]
     Indication: OSTEOPENIA
  5. CALCIUM (UNSPECIFIED) [Concomitant]
     Dosage: 500 MG, BID
     Dates: start: 1980
  6. CENTRUM SILVER [Concomitant]
     Dosage: UNK
     Dates: start: 1980

REACTIONS (29)
  - Femur fracture [Unknown]
  - Myocardial infarction [Unknown]
  - Deafness [Unknown]
  - Intramedullary rod insertion [Unknown]
  - Bone graft [Unknown]
  - Hysterectomy [Unknown]
  - Lumbar vertebral fracture [Unknown]
  - Vitamin D deficiency [Unknown]
  - Blood cholesterol increased [Unknown]
  - Cardiac disorder [Unknown]
  - Scoliosis [Unknown]
  - Spinal osteoarthritis [Unknown]
  - Increased tendency to bruise [Unknown]
  - Scarlet fever [Unknown]
  - Hysterectomy [Unknown]
  - Aortic dilatation [Unknown]
  - Ligament sprain [Unknown]
  - Ankle fracture [Unknown]
  - Lumbar spinal stenosis [Unknown]
  - Carpal tunnel syndrome [Unknown]
  - Cystocele [Unknown]
  - Limb operation [Unknown]
  - Diabetes mellitus [Unknown]
  - Limb discomfort [Unknown]
  - Pain in extremity [Unknown]
  - Pain in extremity [Unknown]
  - Back pain [Unknown]
  - Gastrooesophageal reflux disease [Unknown]
  - Muscle spasms [Unknown]
